FAERS Safety Report 7878708-5 (Version None)
Quarter: 2011Q4

REPORT INFORMATION
  Report Type: 
  Country: None (occurrence: None)
  Receive Date: 20111020
  Receipt Date: 20110922
  Transmission Date: 20120403
  Serious: No
  Sender: FDA-Public Use
  Company Number: 2011AL000075

PATIENT
  Age: 72 Year
  Sex: Male

DRUGS (1)
  1. FOLOTYN [Suspect]
     Indication: NON-HODGKIN'S LYMPHOMA

REACTIONS (3)
  - JOINT SWELLING [None]
  - ERYTHEMA [None]
  - FACIAL PAIN [None]
